FAERS Safety Report 16289103 (Version 1)
Quarter: 2019Q2

REPORT INFORMATION
  Report Type: Spontaneous
  Country: US (occurrence: US)
  Receive Date: 20190403
  Receipt Date: 20190403
  Transmission Date: 20190711
  Serious: No
  Sender: FDA-Public Use
  Company Number: None

PATIENT
  Age: 37 Year
  Sex: Male

DRUGS (1)
  1. COSENTYX [Suspect]
     Active Substance: SECUKINUMAB
     Route: 058
     Dates: start: 20180406, end: 20190403

REACTIONS (5)
  - Body temperature abnormal [None]
  - Chills [None]
  - Influenza [None]
  - Pain [None]
  - Product dose omission [None]

NARRATIVE: CASE EVENT DATE: 20190403
